FAERS Safety Report 24903741 (Version 1)
Quarter: 2025Q1

REPORT INFORMATION
  Report Type: Spontaneous
  Country: DE (occurrence: DE)
  Receive Date: 20250130
  Receipt Date: 20250130
  Transmission Date: 20250408
  Serious: Yes (Life-Threatening, Other)
  Sender: AUROBINDO
  Company Number: DE-EMA-DD-20250115-7482663-085523

PATIENT
  Age: 31 Year
  Sex: Female

DRUGS (7)
  1. CARBOPLATIN [Suspect]
     Active Substance: CARBOPLATIN
     Indication: Ovarian cancer stage III
     Route: 065
  2. CARBOPLATIN [Suspect]
     Active Substance: CARBOPLATIN
     Route: 065
  3. PACLITAXEL [Suspect]
     Active Substance: PACLITAXEL
     Indication: Ovarian cancer stage III
     Route: 065
  4. PACLITAXEL [Suspect]
     Active Substance: PACLITAXEL
     Route: 065
  5. BEVACIZUMAB [Suspect]
     Active Substance: BEVACIZUMAB
     Indication: Ovarian cancer stage III
     Route: 065
  6. BEVACIZUMAB [Suspect]
     Active Substance: BEVACIZUMAB
     Route: 065
  7. PACLITAXEL [Concomitant]
     Active Substance: PACLITAXEL
     Indication: Ovarian cancer
     Route: 065

REACTIONS (5)
  - Uterine rupture [Recovering/Resolving]
  - Haemoperitoneum [Unknown]
  - Proteinuria [Recovering/Resolving]
  - Maternal exposure during pregnancy [Unknown]
  - Maternal exposure before pregnancy [Unknown]
